FAERS Safety Report 6865485-X (Version None)
Quarter: 2010Q3

REPORT INFORMATION
  Report Type: 
  Country: None (occurrence: None)
  Receive Date: 20100721
  Receipt Date: 20080424
  Transmission Date: 20110219
  Serious: No
  Sender: FDA-Public Use
  Company Number: US-PFIZER INC-2008035621

PATIENT
  Sex: Female
  Weight: 109.09 kg

DRUGS (8)
  1. CHANTIX [Suspect]
     Indication: SMOKING CESSATION THERAPY
     Route: 048
     Dates: start: 20080405
  2. NEXIUM [Concomitant]
     Indication: GASTRIC ULCER
  3. SYNTHROID [Concomitant]
     Indication: HYPOTHYROIDISM
  4. COPAXONE [Concomitant]
     Indication: MULTIPLE SCLEROSIS
  5. LIPITOR [Concomitant]
     Indication: BLOOD CHOLESTEROL
  6. NEURONTIN [Concomitant]
  7. PROVIGIL [Concomitant]
  8. ESTRACE [Concomitant]

REACTIONS (1)
  - NAUSEA [None]
